FAERS Safety Report 6908559-7 (Version None)
Quarter: 2010Q3

REPORT INFORMATION
  Report Type: 
  Country: None (occurrence: None)
  Receive Date: 20100805
  Receipt Date: 20100727
  Transmission Date: 20110219
  Serious: Yes (Death)
  Sender: FDA-Public Use
  Company Number: FR-PFIZER INC-2010094367

PATIENT
  Sex: Male

DRUGS (1)
  1. PROSTINE E2 [Suspect]
     Indication: LABOUR INDUCTION
     Dosage: 2 MG THEN 1 MG 6 HOURS AFTER
     Dates: start: 20091001

REACTIONS (1)
  - INTRA-UTERINE DEATH [None]
